FAERS Safety Report 19212252 (Version 5)
Quarter: 2021Q2

REPORT INFORMATION
  Report Type: Report from Study
  Country: IT (occurrence: IT)
  Receive Date: 20210504
  Receipt Date: 20210528
  Transmission Date: 20210717
  Serious: Yes (Hospitalization)
  Sender: FDA-Public Use
  Company Number: IT-PFIZER INC-2021469598

PATIENT
  Age: 42 Year
  Sex: Female
  Weight: 80 kg

DRUGS (7)
  1. SUNITINIB MALATE. [Suspect]
     Active Substance: SUNITINIB MALATE
     Dosage: 37.5 MG, DAILY
     Dates: start: 20210226, end: 20210315
  2. CETIRIZINE [Concomitant]
     Active Substance: CETIRIZINE HYDROCHLORIDE
     Indication: ASTHMA
     Dosage: UNK
     Route: 048
  3. BMS?936558 [Suspect]
     Active Substance: NIVOLUMAB
     Dosage: 240 MG, CYCLIC (EVERY 2 WEEKS)
     Dates: start: 20210412, end: 20210412
  4. DELORAZEPAM [Concomitant]
     Active Substance: DELORAZEPAM
     Indication: ANXIETY
     Dosage: UNK
  5. CITALOPRAM [Concomitant]
     Active Substance: CITALOPRAM HYDROBROMIDE
     Indication: DEPRESSION
     Dosage: UNK
     Route: 048
  6. BMS?936558 [Suspect]
     Active Substance: NIVOLUMAB
     Dosage: 240 MG, CYCLIC (EVERY 2 WEEKS)
     Dates: start: 20210322, end: 20210322
  7. SUNITINIB MALATE. [Suspect]
     Active Substance: SUNITINIB MALATE
     Dosage: 25 MG, DAILY
     Dates: start: 20210412, end: 20210426

REACTIONS (2)
  - Hepatitis [Not Recovered/Not Resolved]
  - Pancreatitis [Not Recovered/Not Resolved]

NARRATIVE: CASE EVENT DATE: 20210426
